FAERS Safety Report 6501672-8 (Version None)
Quarter: 2009Q4

REPORT INFORMATION
  Report Type: 
  Country: None (occurrence: None)
  Receive Date: 20091127
  Receipt Date: 20090113
  Transmission Date: 20100525
  Serious: Yes (Other)
  Sender: FDA-Public Use
  Company Number: WAES 0808USA04594

PATIENT
  Sex: Female

DRUGS (2)
  1. FOSAMAX [Suspect]
     Indication: OSTEOPOROSIS
     Dosage: 70 MG/PO
     Route: 048
     Dates: start: 20041210, end: 20070915
  2. VERAPAMIL [Concomitant]

REACTIONS (4)
  - IMPAIRED HEALING [None]
  - INCORRECT ROUTE OF DRUG ADMINISTRATION [None]
  - ORAL INFECTION [None]
  - OSTEONECROSIS [None]
